FAERS Safety Report 5252888-2 (Version None)
Quarter: 2007Q1

REPORT INFORMATION
  Report Type: 
  Country: None (occurrence: None)
  Receive Date: 20070227
  Receipt Date: 20070215
  Transmission Date: 20070707
  Serious: Yes (Other)
  Sender: FDA-Public Use
  Company Number: 2007SP003081

PATIENT
  Age: 18 Year
  Sex: Female

DRUGS (3)
  1. CELESTONE [Suspect]
     Indication: SYSTEMIC LUPUS ERYTHEMATOSUS
     Dosage: SEE IMAGE
     Route: 048
  2. CYCLOPHOSPHAN [Concomitant]
  3. PLACVENILI [Concomitant]

REACTIONS (2)
  - MAJOR DEPRESSION [None]
  - SUICIDAL IDEATION [None]
